FAERS Safety Report 4940680-5 (Version None)
Quarter: 2006Q1

REPORT INFORMATION
  Report Type: 
  Country: None (occurrence: None)
  Receive Date: 20060127
  Receipt Date: 20051010
  Transmission Date: 20060701
  Serious: Yes (Other)
  Sender: FDA-Public Use
  Company Number: 2005141420

PATIENT
  Sex: Female

DRUGS (1)
  1. LYRICA [Suspect]
     Indication: ILL-DEFINED DISORDER
     Dosage: 300 MG (1 D)

REACTIONS (4)
  - DIARRHOEA [None]
  - MUSCLE SPASMS [None]
  - PRURITUS [None]
  - TREMOR [None]
